FAERS Safety Report 24543636 (Version 1)
Quarter: 2024Q4

REPORT INFORMATION
  Report Type: Spontaneous
  Country: US (occurrence: US)
  Receive Date: 20241024
  Receipt Date: 20241024
  Transmission Date: 20250115
  Serious: Yes (Other)
  Sender: JOHNSON AND JOHNSON
  Company Number: US-VIIV HEALTHCARE-US2024AMR128341

PATIENT
  Age: 54 Year
  Sex: Male

DRUGS (2)
  1. RILPIVIRINE [Suspect]
     Active Substance: RILPIVIRINE
     Indication: HIV infection
     Dosage: UNK UNK, MO
     Route: 065
     Dates: start: 2022, end: 2023
  2. CABOTEGRAVIR [Suspect]
     Active Substance: CABOTEGRAVIR
     Indication: HIV infection
     Dosage: UNK UNK, MO
     Route: 065
     Dates: start: 2022, end: 2023

REACTIONS (5)
  - Abscess [Recovered/Resolved]
  - Nodule [Recovered/Resolved]
  - Mass [Recovered/Resolved]
  - Feeling hot [Unknown]
  - Pain [Unknown]
